FAERS Safety Report 10059903 (Version 9)
Quarter: 2015Q1

REPORT INFORMATION
  Report Type: Spontaneous
  Country: US (occurrence: US)
  Receive Date: 20140404
  Receipt Date: 20150305
  Transmission Date: 20150720
  Serious: Yes (Hospitalization)
  Sender: FDA-Public Use
  Company Number: US-ACTELION-A-US2014-96728

PATIENT
  Age: 34 Year
  Sex: Female

DRUGS (4)
  1. COUMADIN [Concomitant]
     Active Substance: WARFARIN SODIUM
  2. TRACLEER [Suspect]
     Active Substance: BOSENTAN\BOSENTAN MONOHYDRATE
     Indication: PULMONARY ARTERIAL HYPERTENSION
     Dosage: UNK
     Route: 048
     Dates: start: 20131224
  3. SILDENAFIL. [Concomitant]
     Active Substance: SILDENAFIL
  4. REMODULIN [Concomitant]
     Active Substance: TREPROSTINIL

REACTIONS (11)
  - Pyrexia [Recovered/Resolved]
  - Feeling hot [Recovered/Resolved]
  - Pulmonary arterial hypertension [Recovered/Resolved]
  - Ear infection [Unknown]
  - Diarrhoea [Unknown]
  - Staphylococcus test [Recovered/Resolved]
  - Catheter site infection [Recovered/Resolved]
  - Vomiting [Unknown]
  - Pneumonia [Unknown]
  - Respiratory distress [Recovered/Resolved]
  - Device related infection [Recovered/Resolved]

NARRATIVE: CASE EVENT DATE: 20140704
